FAERS Safety Report 25999809 (Version 1)
Quarter: 2025Q4

REPORT INFORMATION
  Report Type: Spontaneous
  Country: CN (occurrence: CN)
  Receive Date: 20251105
  Receipt Date: 20251105
  Transmission Date: 20260118
  Serious: Yes (Other)
  Sender: ACCORD
  Company Number: CN-Accord-511200

PATIENT
  Age: 56 Year
  Sex: Male

DRUGS (16)
  1. GEMCITABINE [Suspect]
     Active Substance: GEMCITABINE
     Indication: Pancreatic carcinoma stage IV
     Dosage: ON DAYS 1 AND 8
     Dates: start: 202407
  2. PACLITAXEL [Suspect]
     Active Substance: PACLITAXEL
     Indication: Pancreatic carcinoma stage IV
     Dosage: ON DAYS 1 AND 8
     Dates: start: 202407
  3. NIMOTUZUMAB [Suspect]
     Active Substance: NIMOTUZUMAB
     Indication: Pancreatic carcinoma stage IV
     Dates: start: 202407
  4. CADONILIMAB [Suspect]
     Active Substance: CADONILIMAB
     Indication: Pancreatic carcinoma stage IV
     Dates: start: 202407
  5. CADONILIMAB [Suspect]
     Active Substance: CADONILIMAB
     Indication: Pancreatic carcinoma metastatic
     Dates: start: 202407
  6. CADONILIMAB [Suspect]
     Active Substance: CADONILIMAB
     Indication: Metastases to liver
     Dates: start: 202407
  7. CADONILIMAB [Suspect]
     Active Substance: CADONILIMAB
     Indication: Metastases to retroperitoneum
     Dates: start: 202407
  8. NIMOTUZUMAB [Suspect]
     Active Substance: NIMOTUZUMAB
     Indication: Pancreatic carcinoma metastatic
     Dates: start: 202407
  9. NIMOTUZUMAB [Suspect]
     Active Substance: NIMOTUZUMAB
     Indication: Metastases to liver
     Dates: start: 202407
  10. NIMOTUZUMAB [Suspect]
     Active Substance: NIMOTUZUMAB
     Indication: Metastases to retroperitoneum
     Dates: start: 202407
  11. PACLITAXEL [Suspect]
     Active Substance: PACLITAXEL
     Indication: Pancreatic carcinoma metastatic
     Dosage: ON DAYS 1 AND 8
     Dates: start: 202407
  12. PACLITAXEL [Suspect]
     Active Substance: PACLITAXEL
     Indication: Metastases to liver
     Dosage: ON DAYS 1 AND 8
     Dates: start: 202407
  13. PACLITAXEL [Suspect]
     Active Substance: PACLITAXEL
     Indication: Metastases to retroperitoneum
     Dosage: ON DAYS 1 AND 8
     Dates: start: 202407
  14. GEMCITABINE [Suspect]
     Active Substance: GEMCITABINE
     Indication: Pancreatic carcinoma metastatic
     Dosage: ON DAYS 1 AND 8
     Dates: start: 202407
  15. GEMCITABINE [Suspect]
     Active Substance: GEMCITABINE
     Indication: Metastases to liver
     Dosage: ON DAYS 1 AND 8
     Dates: start: 202407
  16. GEMCITABINE [Suspect]
     Active Substance: GEMCITABINE
     Indication: Metastases to retroperitoneum
     Dosage: ON DAYS 1 AND 8
     Dates: start: 202407

REACTIONS (2)
  - Hypothyroidism [Recovered/Resolved]
  - Haematotoxicity [Recovered/Resolved]

NARRATIVE: CASE EVENT DATE: 20240901
